FAERS Safety Report 7644330-9 (Version None)
Quarter: 2011Q3

REPORT INFORMATION
  Report Type: 
  Country: None (occurrence: None)
  Receive Date: 20110729
  Receipt Date: 20110725
  Transmission Date: 20111222
  Serious: Yes (Hospitalization, Other)
  Sender: FDA-Public Use
  Company Number: US-ELI_LILLY_AND_COMPANY-US201002003773

PATIENT
  Sex: Female
  Weight: 65.76 kg

DRUGS (19)
  1. PREMARIN [Concomitant]
     Dosage: 1.25 MG, QD
  2. PRILOSEC [Concomitant]
     Dosage: 20 MG, QD
  3. NITROGLYCERIN [Concomitant]
     Dosage: 2.5 DF, UNK
  4. METHADONE HYDROCHLORIDE [Concomitant]
     Dosage: 5 MG, UNK
  5. HUMULIN 70/30 [Concomitant]
  6. FERROUS SULFATE TAB [Concomitant]
  7. TOPROL-XL [Concomitant]
     Dosage: 100 MG, QD
  8. LASIX [Concomitant]
     Dosage: 40 MG, QD
  9. LIPITOR [Concomitant]
     Dosage: 20 MG, QD
  10. KLONOPIN [Concomitant]
     Dosage: 0.5 MG, UNK
  11. ASPIRIN [Concomitant]
     Dosage: 325 MG, QD
  12. BYETTA [Suspect]
     Dosage: 10 UG, BID
     Route: 065
     Dates: start: 20060328, end: 20080307
  13. FOLIC ACID [Concomitant]
     Dosage: 1 MG, QD
  14. SYNTHROID [Concomitant]
     Dosage: 75 UG, QD
  15. POTASSIUM [Concomitant]
     Dosage: 20 MEQ, QD
  16. GLUCOVANCE [Concomitant]
  17. TUMS E-X [Concomitant]
  18. HYDRALAZINE HCL [Concomitant]
     Dosage: 25 MG, UNKNOWN
  19. NEURONTIN [Concomitant]
     Dosage: 600 MG, TID

REACTIONS (5)
  - MEMORY IMPAIRMENT [None]
  - FALL [None]
  - OFF LABEL USE [None]
  - PANCREATITIS [None]
  - CHOLELITHIASIS [None]
